FAERS Safety Report 6303962-0 (Version None)
Quarter: 2009Q3

REPORT INFORMATION
  Report Type: 
  Country: None (occurrence: None)
  Receive Date: 20090810
  Receipt Date: 20090810
  Transmission Date: 20100115
  Serious: No
  Sender: FDA-Public Use
  Company Number: None

PATIENT
  Age: 48 Year
  Sex: Male
  Weight: 108.8633 kg

DRUGS (2)
  1. NUVIGIL [Suspect]
     Indication: SLEEP APNOEA SYNDROME
     Dosage: 150 MG 1/DAY PO
     Route: 048
     Dates: start: 20090805, end: 20090809
  2. NUVIGIL [Suspect]
     Indication: SOMNOLENCE
     Dosage: 150 MG 1/DAY PO
     Route: 048
     Dates: start: 20090805, end: 20090809

REACTIONS (4)
  - CHEST DISCOMFORT [None]
  - DIZZINESS [None]
  - HEADACHE [None]
  - VISUAL IMPAIRMENT [None]
